FAERS Safety Report 9861014 (Version 2)
Quarter: 2014Q1

REPORT INFORMATION
  Report Type: Spontaneous
  Country: US (occurrence: US)
  Receive Date: 20140202
  Receipt Date: 20140202
  Transmission Date: 20141002
  Serious: No
  Sender: FDA-Public Use
  Company Number: US-ALLERGAN-1302921US

PATIENT
  Sex: Female

DRUGS (20)
  1. BOTOX [Suspect]
     Indication: TORTICOLLIS
     Dosage: 5 UNITS, SINGLE
     Route: 030
     Dates: start: 20120229, end: 20120229
  2. BOTOX [Suspect]
     Indication: TENSION HEADACHE
     Dosage: 5 UNITS, SINGLE
     Route: 030
     Dates: start: 20120229, end: 20120229
  3. BOTOX [Suspect]
     Dosage: 10 UNITS, SINGLE
     Route: 030
     Dates: start: 20120229, end: 20120229
  4. BOTOX [Suspect]
     Dosage: 10 UNITS, SINGLE
     Route: 030
     Dates: start: 20120229, end: 20120229
  5. BOTOX [Suspect]
     Dosage: 10 UNITS, SINGLE
     Route: 030
     Dates: start: 20120229, end: 20120229
  6. BOTOX [Suspect]
     Dosage: 15 UNITS, SINGLE
     Route: 030
     Dates: start: 20120229, end: 20120229
  7. BOTOX [Suspect]
     Dosage: 10 UNITS, SINGLE
     Route: 030
     Dates: start: 20120229, end: 20120229
  8. BOTOX [Suspect]
     Dosage: 10 UNITS, SINGLE
     Route: 030
     Dates: start: 20120229, end: 20120229
  9. BOTOX [Suspect]
     Dosage: 10 UNITS, SINGLE
     Route: 030
     Dates: start: 20120229, end: 20120229
  10. BOTOX [Suspect]
     Dosage: 10 UNITS, SINGLE
     Route: 030
     Dates: start: 20120229, end: 20120229
  11. BOTOX [Suspect]
     Dosage: 20 UNITS, SINGLE
     Route: 030
     Dates: start: 20120229, end: 20120229
  12. BOTOX [Suspect]
     Dosage: 20 UNITS, SINGLE
     Route: 030
     Dates: start: 20120229, end: 20120229
  13. BOTOX [Suspect]
     Dosage: 30 UNITS, SINGLE
     Route: 030
     Dates: start: 20120229, end: 20120229
  14. BOTOX [Suspect]
     Dosage: 35 UNITS, SINGLE
     Route: 030
     Dates: start: 20120229, end: 20120229
  15. MULTIVITAMIN                       /00097801/ [Concomitant]
     Indication: SUPPLEMENTATION THERAPY
     Dosage: UNK
  16. VITAMIN D                          /00107901/ [Concomitant]
     Indication: SUPPLEMENTATION THERAPY
     Dosage: UNK
  17. ASPIRIN [Concomitant]
     Indication: CARDIOVASCULAR EVENT PROPHYLAXIS
     Dosage: 81 MG, QD
     Route: 048
  18. ZOCOR [Concomitant]
     Indication: PRODUCT USED FOR UNKNOWN INDICATION
     Dosage: 10 MG, QHS
     Route: 048
  19. MOBIC [Concomitant]
     Indication: PRODUCT USED FOR UNKNOWN INDICATION
     Dosage: 15 MG, QD
     Route: 048
  20. CELEXA                             /00582602/ [Concomitant]
     Indication: PRODUCT USED FOR UNKNOWN INDICATION
     Dosage: UNK UNK, QD
     Route: 048

REACTIONS (12)
  - Mastication disorder [Unknown]
  - Joint range of motion decreased [Unknown]
  - Trismus [Unknown]
  - Fear [Unknown]
  - Oropharyngeal spasm [Unknown]
  - Sinusitis [Unknown]
  - Musculoskeletal stiffness [Unknown]
  - Hypoaesthesia [Unknown]
  - Joint stiffness [Unknown]
  - Muscular weakness [Unknown]
  - Dyspnoea [Unknown]
  - Dysphagia [Unknown]
